FAERS Safety Report 9238028 (Version 2)
Quarter: 2014Q1

REPORT INFORMATION
  Report Type: Spontaneous
  Country: SA (occurrence: SA)
  Receive Date: 20130418
  Receipt Date: 20140206
  Transmission Date: 20141002
  Serious: Yes (Other)
  Sender: FDA-Public Use
  Company Number: SA-JNJFOC-20130405469

PATIENT
  Age: 41 Year
  Sex: Female

DRUGS (1)
  1. REMICADE [Suspect]
     Indication: CROHN^S DISEASE
     Dosage: STARTED 1.5 YEAR PRIOR TO THE DATE OF REPORT
     Route: 042
     Dates: start: 2010

REACTIONS (2)
  - Erythema nodosum [Recovered/Resolved]
  - Therapeutic response unexpected [Unknown]
